FAERS Safety Report 5975865-2 (Version None)
Quarter: 2008Q4

REPORT INFORMATION
  Report Type: 
  Country: None (occurrence: None)
  Receive Date: 20081202
  Receipt Date: 20081126
  Transmission Date: 20090506
  Serious: Yes (Other)
  Sender: FDA-Public Use
  Company Number: B0531853A

PATIENT
  Age: 65 Year
  Sex: Male

DRUGS (7)
  1. SERETIDE [Suspect]
     Indication: ASTHMA
     Dosage: 2PUFF TWICE PER DAY
     Route: 055
     Dates: start: 20000101
  2. VENTOLIN [Suspect]
     Indication: ASTHMA
     Dosage: 100MCG AS REQUIRED
     Dates: start: 20000101
  3. ASPIRIN [Suspect]
     Dosage: 150MG PER DAY
     Route: 065
  4. BISOPROLOL FUMARATE [Suspect]
     Dosage: 2.5MG PER DAY
  5. RAMIPRIL [Suspect]
     Dosage: 5MG PER DAY
  6. SIMVASTATIN [Suspect]
     Dosage: 40MG PER DAY
     Route: 065
  7. NITROLINGUAL [Suspect]
     Route: 055

REACTIONS (3)
  - ASTHMA [None]
  - DYSPNOEA [None]
  - NASOPHARYNGITIS [None]
